FAERS Safety Report 6277629-1 (Version None)
Quarter: 2009Q3

REPORT INFORMATION
  Report Type: 
  Country: None (occurrence: None)
  Receive Date: 20090717
  Receipt Date: 20090717
  Transmission Date: 20100115
  Serious: Yes (Other)
  Sender: FDA-Public Use
  Company Number: None

PATIENT
  Sex: Female
  Weight: 77.1115 kg

DRUGS (3)
  1. FENTANYL [Suspect]
     Indication: COMPLEX REGIONAL PAIN SYNDROME
     Dosage: 1 72 HOUR TRANSDERMAL
     Route: 062
     Dates: start: 20070126, end: 20090415
  2. FENTANYL [Suspect]
     Indication: NEURALGIA
     Dosage: 1 72 HOUR TRANSDERMAL
     Route: 062
     Dates: start: 20070126, end: 20090415
  3. ZOLOFT [Suspect]
     Indication: DEPRESSION
     Dosage: 1 1/DAY BUCCAL (ONCE ONLY)
     Route: 002
     Dates: start: 20071126, end: 20071126

REACTIONS (1)
  - SEROTONIN SYNDROME [None]
